FAERS Safety Report 7440300-4 (Version None)
Quarter: 2011Q2

REPORT INFORMATION
  Report Type: 
  Country: None (occurrence: None)
  Receive Date: 20110427
  Receipt Date: 20110419
  Transmission Date: 20111010
  Serious: Yes (Disabling)
  Sender: FDA-Public Use
  Company Number: PHHY2011GB32597

PATIENT
  Age: 64 Year
  Sex: Male

DRUGS (3)
  1. TRAMADOL [Suspect]
     Indication: BACK PAIN
     Dosage: UNK UKN, UNK
     Dates: start: 20110404
  2. SERTRALINE [Interacting]
     Dosage: UNK UKN, UNK
     Dates: start: 20110121
  3. PARACETAMOL [Concomitant]
     Dosage: UNK UKN, UNK
     Dates: start: 20110404, end: 20110407

REACTIONS (5)
  - HYPERHIDROSIS [None]
  - VOMITING [None]
  - COLD SWEAT [None]
  - DRUG INTERACTION [None]
  - SOMNOLENCE [None]
